FAERS Safety Report 9187628 (Version 2)
Quarter: 2013Q2

REPORT INFORMATION
  Report Type: Spontaneous
  Country: JP (occurrence: JP)
  Receive Date: 20130325
  Receipt Date: 20130524
  Transmission Date: 20140414
  Serious: Yes (Other)
  Sender: FDA-Public Use
  Company Number: JP-UCBSA-081463

PATIENT
  Age: 13 Year
  Sex: Male

DRUGS (3)
  1. XYZAL [Suspect]
     Indication: RHINITIS ALLERGIC
     Route: 048
     Dates: start: 20130302, end: 20130316
  2. NASONEX [Concomitant]
     Indication: RHINITIS ALLERGIC
     Dosage: DOSAGE FORM: NSPY
     Route: 045
     Dates: start: 20130302, end: 20130401
  3. PATANOL [Concomitant]
     Indication: CONJUNCTIVITIS ALLERGIC
     Dosage: DOSAGE FORM: DRPP
     Route: 031
     Dates: start: 20130302, end: 20130401

REACTIONS (3)
  - Cystitis haemorrhagic [Recovering/Resolving]
  - Pollakiuria [Recovering/Resolving]
  - Dysuria [Recovering/Resolving]
